FAERS Safety Report 14426348 (Version 1)
Quarter: 2018Q1

REPORT INFORMATION
  Report Type: Spontaneous
  Country: US (occurrence: US)
  Receive Date: 20180123
  Receipt Date: 20180123
  Transmission Date: 20180509
  Serious: No
  Sender: FDA-Public Use
  Company Number: US-ROCHE-2027321

PATIENT
  Age: 51 Year
  Sex: Male
  Weight: 81.72 kg

DRUGS (9)
  1. LYRICA [Concomitant]
     Active Substance: PREGABALIN
     Dosage: ONGOING: YES
     Route: 065
  2. AMPYRA [Concomitant]
     Active Substance: DALFAMPRIDINE
     Dosage: ONGOING: YES
     Route: 065
  3. MYRBETRIQ [Concomitant]
     Active Substance: MIRABEGRON
     Dosage: ONGOING: YES
     Route: 065
  4. ENTECAVIR. [Concomitant]
     Active Substance: ENTECAVIR
  5. IVIG [Suspect]
     Active Substance: HUMAN IMMUNOGLOBULIN G
     Indication: PRODUCT USED FOR UNKNOWN INDICATION
     Dosage: ACCIDENTLY RECEIVED 30 CC
     Route: 065
  6. AMITIZA [Concomitant]
     Active Substance: LUBIPROSTONE
     Dosage: ONGOING: YES
     Route: 065
  7. OCREVUS [Suspect]
     Active Substance: OCRELIZUMAB
     Indication: MULTIPLE SCLEROSIS
     Route: 065
     Dates: start: 201710
  8. FLOMAX [Concomitant]
     Active Substance: TAMSULOSIN HYDROCHLORIDE
     Dosage: ONGOING: YES
     Route: 065
  9. ZOLPIDEM [Concomitant]
     Active Substance: ZOLPIDEM\ZOLPIDEM TARTRATE
     Dosage: TAKEN AT NIGHT, ONGOING: YES
     Route: 065

REACTIONS (2)
  - Wrong drug administered [Unknown]
  - No adverse event [Unknown]

NARRATIVE: CASE EVENT DATE: 20171106
